FAERS Safety Report 4310563-2 (Version None)
Quarter: 2004Q1

REPORT INFORMATION
  Report Type: 
  Country: None (occurrence: None)
  Receive Date: 20040303
  Receipt Date: 20040219
  Transmission Date: 20041129
  Serious: Yes (Disabling)
  Sender: FDA-Public Use
  Company Number: CH-GLAXOSMITHKLINE-B0324005A

PATIENT
  Age: 59 Year
  Sex: Male
  Weight: 43.6 kg

DRUGS (4)
  1. AVANDIA [Suspect]
     Indication: METABOLIC SYNDROME
     Dosage: 4MG PER DAY
     Route: 048
     Dates: start: 20030527, end: 20031128
  2. LESCOL [Suspect]
     Dosage: 40MG PER DAY
     Route: 048
     Dates: start: 20030902, end: 20031128
  3. TENORMIN [Concomitant]
     Dosage: 50MG PER DAY
     Route: 048
     Dates: start: 20031128
  4. COSAAR PLUS [Concomitant]
     Route: 048
     Dates: start: 20031128

REACTIONS (8)
  - ALANINE AMINOTRANSFERASE INCREASED [None]
  - ASPARTATE AMINOTRANSFERASE INCREASED [None]
  - BLOOD ALKALINE PHOSPHATASE INCREASED [None]
  - BLOOD BILIRUBIN INCREASED [None]
  - DRUG INTERACTION [None]
  - GAMMA-GLUTAMYLTRANSFERASE INCREASED [None]
  - HEPATOTOXICITY [None]
  - PYREXIA [None]
